FAERS Safety Report 20525833 (Version 2)
Quarter: 2022Q1

REPORT INFORMATION
  Report Type: Other
  Country: IT (occurrence: IT)
  Receive Date: 20220228
  Receipt Date: 20220325
  Transmission Date: 20220423
  Serious: Yes (Other)
  Sender: FDA-Public Use
  Company Number: IT-CELLTRION INC.-2022IT002053

PATIENT

DRUGS (2)
  1. RITUXIMAB [Suspect]
     Active Substance: RITUXIMAB
     Indication: Product used for unknown indication
     Dosage: UNK
     Route: 065
     Dates: start: 202104, end: 202109
  2. VENETOCLAX [Suspect]
     Active Substance: VENETOCLAX
     Indication: Product used for unknown indication
     Dosage: UNK
     Route: 048
     Dates: start: 202104, end: 202111

REACTIONS (4)
  - Nervous system disorder [Unknown]
  - Progressive multifocal leukoencephalopathy [Unknown]
  - Gait disturbance [Unknown]
  - Blindness [Unknown]

NARRATIVE: CASE EVENT DATE: 20210901
